FAERS Safety Report 8024482-1 (Version None)
Quarter: 2012Q1

REPORT INFORMATION
  Report Type: 
  Country: None (occurrence: None)
  Receive Date: 20120103
  Receipt Date: 20111219
  Transmission Date: 20120608
  Serious: No
  Sender: FDA-Public Use
  Company Number: 2011-01331

PATIENT
  Age: 56 Year
  Sex: Female
  Weight: 74.8435 kg

DRUGS (6)
  1. ZICAM COLD REMEDY PLUS LIQUI-LOZ [Suspect]
     Indication: FEELING COLD
     Dosage: ONE LIQUI-LOZ EVERY 4-5 HOURS
     Dates: start: 20111216, end: 20111217
  2. MORPHINE [Concomitant]
  3. SYNTHROID [Concomitant]
  4. DILITAZEM [Concomitant]
  5. LORTAB [Concomitant]
  6. FLEXERIL [Concomitant]

REACTIONS (1)
  - AGEUSIA [None]
